FAERS Safety Report 9068746 (Version 1)
Quarter: 2013Q1

REPORT INFORMATION
  Report Type: Spontaneous
  Country: US (occurrence: US)
  Receive Date: 20130215
  Receipt Date: 20130215
  Transmission Date: 20140127
  Serious: No
  Sender: FDA-Public Use
  Company Number: US-PFIZER INC-2013058305

PATIENT
  Sex: Female

DRUGS (1)
  1. ALDACTONE [Suspect]
     Indication: HYPERTENSION
     Dosage: 100 MG (FOUR TABLETS OF 25 MG), 2X/DAY
     Route: 048

REACTIONS (3)
  - Nausea [Recovered/Resolved]
  - Renal pain [Recovered/Resolved]
  - Somnolence [Recovered/Resolved]
